FAERS Safety Report 5172281-0 (Version None)
Quarter: 2006Q4

REPORT INFORMATION
  Report Type: 
  Country: None (occurrence: None)
  Receive Date: 20061205
  Receipt Date: 20061128
  Transmission Date: 20070319
  Serious: Yes (Death, Life-Threatening, Hospitalization)
  Sender: FDA-Public Use
  Company Number: US-2006-034966

PATIENT
  Age: 44 Year
  Sex: Male
  Weight: 79 kg

DRUGS (2)
  1. ULTRAVIST 300 [Suspect]
     Indication: COMPUTERISED TOMOGRAM ABDOMEN
     Dosage: 94 ML, 1 DOSE, INTRAVENOUS
     Route: 042
     Dates: start: 20061027, end: 20061027
  2. READI-CAT [Concomitant]

REACTIONS (5)
  - BURNING SENSATION [None]
  - CARDIO-RESPIRATORY ARREST [None]
  - CEREBROVASCULAR ACCIDENT [None]
  - LOSS OF CONSCIOUSNESS [None]
  - POST PROCEDURAL COMPLICATION [None]
